FAERS Safety Report 9834150 (Version 1)
Quarter: 2014Q1

REPORT INFORMATION
  Report Type: Spontaneous
  Country: JP (occurrence: JP)
  Receive Date: 20140122
  Receipt Date: 20140122
  Transmission Date: 20141002
  Serious: Yes (Hospitalization)
  Sender: FDA-Public Use
  Company Number: JP-RANBAXY-2014RR-77470

PATIENT
  Sex: Male

DRUGS (6)
  1. MINOCYCLINE [Suspect]
     Indication: ECZEMA
     Dosage: 200 MG/DAY
     Route: 065
  2. CETIRIZINE HYDROCHLORIDE [Concomitant]
     Indication: PRODUCT USED FOR UNKNOWN INDICATION
     Dosage: UNK
     Route: 065
  3. ASCORBIC ACID/CALCIUM PANTOTHENATE [Concomitant]
     Indication: PRODUCT USED FOR UNKNOWN INDICATION
     Dosage: UNK
     Route: 065
  4. LEVOFLOXACIN HYDRATE [Concomitant]
     Indication: ECZEMA
     Dosage: UNK
     Route: 048
  5. CEFCAPENE PIVOXIL HYDROCHLORIDE HYDRATE [Concomitant]
     Indication: ECZEMA
     Dosage: UNK
     Route: 065
  6. EMEDASTINE FUMARATE [Concomitant]
     Indication: PRODUCT USED FOR UNKNOWN INDICATION
     Dosage: UNK
     Route: 065

REACTIONS (1)
  - Erythema multiforme [Recovered/Resolved]
